FAERS Safety Report 9978004 (Version 3)
Quarter: 2014Q2

REPORT INFORMATION
  Report Type: Report from Study
  Country: US (occurrence: US)
  Receive Date: 20140306
  Receipt Date: 20140530
  Transmission Date: 20141212
  Serious: Yes (Other)
  Sender: FDA-Public Use
  Company Number: US-ABBVIE-13P-163-1148963-00

PATIENT
  Age: 42 Year
  Sex: Female

DRUGS (2)
  1. HUMIRA [Suspect]
     Indication: CROHN^S DISEASE
     Route: 058
     Dates: start: 201308
  2. TRIVORA [Concomitant]
     Indication: CONTRACEPTION

REACTIONS (13)
  - Ear disorder [Unknown]
  - Injection site rash [Recovering/Resolving]
  - Migraine [Unknown]
  - Injection site rash [Recovering/Resolving]
  - Injection site rash [Recovering/Resolving]
  - Injection site rash [Recovering/Resolving]
  - Injection site mass [Recovering/Resolving]
  - Injection site pain [Unknown]
  - Headache [Unknown]
  - Muscle spasms [Unknown]
  - Diarrhoea [Recovering/Resolving]
  - Rash pruritic [Recovering/Resolving]
  - Hearing impaired [Unknown]
